FAERS Safety Report 5901357-2 (Version None)
Quarter: 2008Q3

REPORT INFORMATION
  Report Type: 
  Country: None (occurrence: None)
  Receive Date: 20080929
  Receipt Date: 20080918
  Transmission Date: 20090109
  Serious: Yes (Hospitalization)
  Sender: FDA-Public Use
  Company Number: CA-JNJFOC-20080905003

PATIENT
  Sex: Female
  Weight: 41.4 kg

DRUGS (2)
  1. REMICADE [Suspect]
     Dosage: 2 TOTAL INFUSIONS
     Route: 042
  2. REMICADE [Suspect]
     Indication: CROHN'S DISEASE
     Route: 042

REACTIONS (5)
  - CHILLS [None]
  - DEHYDRATION [None]
  - MALAISE [None]
  - NAUSEA [None]
  - PYREXIA [None]
